FAERS Safety Report 19697642 (Version 1)
Quarter: 2021Q3

REPORT INFORMATION
  Report Type: Spontaneous
  Country: DE (occurrence: DE)
  Receive Date: 20210813
  Receipt Date: 20210813
  Transmission Date: 20211014
  Serious: Yes (Hospitalization)
  Sender: FDA-Public Use
  Company Number: DE-TEVA-2021-DE-1940767

PATIENT
  Age: 54 Year
  Sex: Male

DRUGS (6)
  1. LERCANIDIPIN [Concomitant]
     Active Substance: LERCANIDIPINE
     Dosage: 1 DOSAGE FORMS DAILY; 0?0?1?0,
     Route: 048
  2. HYDROCHLOROTHIAZID [Concomitant]
     Active Substance: HYDROCHLOROTHIAZIDE
     Dosage: 25 MILLIGRAM DAILY;  1?0?0?0,
     Route: 048
  3. RAMIPRIL. [Concomitant]
     Active Substance: RAMIPRIL
     Dosage: 5 MILLIGRAM DAILY;   1?0?1?0
     Route: 048
  4. LAXOBERAL ABFUHR?TROPFEN 7,5MG/ML [Concomitant]
     Dosage: IF NECESSARY, DROPS
     Route: 048
  5. CAPECITABIN [Suspect]
     Active Substance: CAPECITABINE
     Dosage: 500 MG, FIVE TABLETS IN THE MORNING AND IN THE EVENING FOR FOURTEEN DAYS, THEN A BREAK FOR A WEEK, T
     Route: 048
  6. KREON 25000E. [Concomitant]
     Dosage: 25,000 IU, TWO TO THREE WHEN EATING,
     Route: 048

REACTIONS (2)
  - Haematochezia [Unknown]
  - Dizziness [Unknown]
